FAERS Safety Report 5033387-X (Version None)
Quarter: 2006Q2

REPORT INFORMATION
  Report Type: 
  Country: None (occurrence: None)
  Receive Date: 20060623
  Receipt Date: 20060614
  Transmission Date: 20061013
  Serious: Yes (Other)
  Sender: FDA-Public Use
  Company Number: US-JNJFOC-20060603384

PATIENT
  Age: 76 Year
  Sex: Male

DRUGS (3)
  1. REMICADE [Suspect]
     Route: 042
  2. REMICADE [Suspect]
     Indication: RHEUMATOID ARTHRITIS
     Dosage: 13 INFUSIONS ON UNKNOWN DATES
     Route: 042
  3. METHOTREXATE [Concomitant]

REACTIONS (2)
  - LYMPHOMA [None]
  - SHOULDER PAIN [None]
